FAERS Safety Report 6993735-8 (Version None)
Quarter: 2010Q3

REPORT INFORMATION
  Report Type: 
  Country: None (occurrence: None)
  Receive Date: 20100917
  Receipt Date: 20100309
  Transmission Date: 20110219
  Serious: Yes (Other)
  Sender: FDA-Public Use
  Company Number: US-ASTRAZENECA-2009SE08237

PATIENT
  Age: 315 Month
  Sex: Female
  Weight: 174.6 kg

DRUGS (6)
  1. SEROQUEL [Suspect]
     Indication: DEPRESSION
     Route: 048
     Dates: start: 19990101, end: 20060101
  2. ABILIFY [Concomitant]
     Dates: start: 19970101
  3. GEODON [Concomitant]
     Dates: start: 20050101, end: 20060101
  4. RISPERDAL [Concomitant]
     Dates: start: 20050101
  5. THORAZINE [Concomitant]
     Dosage: 2 AT BEDTIME
     Dates: start: 20050101
  6. ZYPREXA [Concomitant]
     Dates: start: 20000101

REACTIONS (3)
  - OBESITY [None]
  - SUICIDE ATTEMPT [None]
  - TYPE 2 DIABETES MELLITUS [None]
